FAERS Safety Report 7386459-9 (Version None)
Quarter: 2011Q1

REPORT INFORMATION
  Report Type: 
  Country: None (occurrence: None)
  Receive Date: 20110329
  Receipt Date: 20110329
  Transmission Date: 20110831
  Serious: Yes (Other)
  Sender: FDA-Public Use
  Company Number: None

PATIENT
  Age: 63 Year
  Sex: Female
  Weight: 108.8633 kg

DRUGS (4)
  1. STELARA [Suspect]
     Indication: PSORIATIC ARTHROPATHY
     Dosage: 2ND INJECTION VIA PHYSICIAN NEXT INJECTION JUN FIRST INJECTION SECOND INJECTION
     Dates: start: 20110318, end: 20110318
  2. STELARA [Suspect]
     Indication: PSORIASIS
     Dosage: 2ND INJECTION VIA PHYSICIAN NEXT INJECTION JUN FIRST INJECTION SECOND INJECTION
     Dates: start: 20110318, end: 20110318
  3. STELARA [Suspect]
     Indication: PSORIATIC ARTHROPATHY
     Dosage: 2ND INJECTION VIA PHYSICIAN NEXT INJECTION JUN FIRST INJECTION SECOND INJECTION
     Dates: start: 20110218, end: 20110218
  4. STELARA [Suspect]
     Indication: PSORIASIS
     Dosage: 2ND INJECTION VIA PHYSICIAN NEXT INJECTION JUN FIRST INJECTION SECOND INJECTION
     Dates: start: 20110218, end: 20110218

REACTIONS (2)
  - HYPOAESTHESIA [None]
  - MUSCULAR WEAKNESS [None]
